FAERS Safety Report 6317425-X (Version None)
Quarter: 2009Q3

REPORT INFORMATION
  Report Type: 
  Country: None (occurrence: None)
  Receive Date: 20090820
  Receipt Date: 20090820
  Transmission Date: 20100115
  Serious: Yes (Other)
  Sender: FDA-Public Use
  Company Number: None

PATIENT
  Age: 51 Year
  Sex: Female
  Weight: 65.318 kg

DRUGS (1)
  1. LORAZEPAM [Suspect]
     Indication: ANXIETY
     Dosage: TWO PILLS AT NIGHT ORALLY
     Route: 048
     Dates: start: 20081001

REACTIONS (4)
  - DYSPNOEA [None]
  - INCORRECT DOSE ADMINISTERED [None]
  - PALPITATIONS [None]
  - PRODUCT SUBSTITUTION ISSUE [None]
